FAERS Safety Report 17663483 (Version 3)
Quarter: 2025Q2

REPORT INFORMATION
  Report Type: Spontaneous
  Country: GB (occurrence: GB)
  Receive Date: 20200413
  Receipt Date: 20250621
  Transmission Date: 20250717
  Serious: Yes (Other)
  Sender: AUROBINDO
  Company Number: GB-STADA-197524

PATIENT
  Age: 79 Year
  Sex: Male

DRUGS (6)
  1. LAMIVUDINE [Suspect]
     Active Substance: LAMIVUDINE
     Indication: HIV infection
     Route: 065
  2. VALACYCLOVIR HYDROCHLORIDE [Suspect]
     Active Substance: VALACYCLOVIR HYDROCHLORIDE
     Indication: Genital herpes simplex
     Route: 048
  3. TENOFOVIR [Suspect]
     Active Substance: TENOFOVIR
     Indication: HIV infection
     Route: 065
  4. DARUNAVIR [Suspect]
     Active Substance: DARUNAVIR
     Indication: HIV infection
     Route: 065
  5. FOSCARNET [Suspect]
     Active Substance: FOSCARNET
     Indication: Genital herpes simplex
     Route: 042
  6. IMIQUIMOD [Concomitant]
     Active Substance: IMIQUIMOD
     Indication: Genital herpes simplex
     Dosage: 2 GRAM, ONCE A DAY,SCHEDULED FOR 21 DAYS
     Route: 061

REACTIONS (2)
  - Immune reconstitution inflammatory syndrome [Unknown]
  - Pathogen resistance [Unknown]
